FAERS Safety Report 10345098 (Version 1)
Quarter: 2014Q3

REPORT INFORMATION
  Report Type: Spontaneous
  Country: US (occurrence: None)
  Receive Date: 20140725
  Receipt Date: 20140725
  Transmission Date: 20150326
  Serious: Yes (Other)
  Sender: FDA-Public Use
  Company Number: None

PATIENT
  Age: 53 Year
  Sex: Male

DRUGS (1)
  1. PHENYTOIN ER [Suspect]
     Active Substance: PHENYTOIN SODIUM
     Indication: CONVULSION
     Dosage: 4 PILLS QD ORAL
     Route: 048

REACTIONS (1)
  - Deafness [None]

NARRATIVE: CASE EVENT DATE: 20140716
